FAERS Safety Report 8505115-4 (Version None)
Quarter: 2012Q3

REPORT INFORMATION
  Report Type: 
  Country: None (occurrence: None)
  Receive Date: 20120712
  Receipt Date: 20120710
  Transmission Date: 20120928
  Serious: Yes (Death)
  Sender: FDA-Public Use
  Company Number: PHEH2012US009727

PATIENT
  Sex: Male
  Weight: 48.526 kg

DRUGS (4)
  1. HYDROCODONE BITARTRATE AND ACETAMINOPHEN [Concomitant]
  2. CALCITONIN SALMON [Concomitant]
  3. SANDOSTATIN [Concomitant]
  4. AFINITOR [Suspect]
     Dosage: 10 MG, DAILY
     Route: 048

REACTIONS (2)
  - DEATH [None]
  - LETHARGY [None]
